FAERS Safety Report 13426365 (Version 1)
Quarter: 2017Q2

REPORT INFORMATION
  Report Type: Spontaneous
  Country: FR (occurrence: FR)
  Receive Date: 20170411
  Receipt Date: 20170411
  Transmission Date: 20170830
  Serious: Yes (Life-Threatening)
  Sender: FDA-Public Use
  Company Number: FR-INFO-000330

PATIENT
  Age: 51 Year
  Sex: Male
  Weight: 89 kg

DRUGS (4)
  1. PREGABALIN. [Interacting]
     Active Substance: PREGABALIN
     Route: 048
  2. DIAZEPAM. [Interacting]
     Active Substance: DIAZEPAM
     Route: 048
  3. FLUCONAZOLE. [Suspect]
     Active Substance: FLUCONAZOLE
     Indication: URINARY TRACT INFECTION FUNGAL
     Dosage: 800 MG ADMINISTERED ON APRIL 22 6 P.M. FOLLOWED BY 400 MG DAILY FIRST ADMINISTERED ON APRIL 23 8 A.M
     Route: 041
     Dates: start: 20160422
  4. OXYCODONE [Interacting]
     Active Substance: OXYCODONE
     Dosage: 60 MG Q12H SLOW RELEASE WITH INTERIM DOSES OF 10 MG Q4H IMMEDIATE RELEASE
     Route: 065
     Dates: start: 20160412

REACTIONS (2)
  - Respiratory depression [Recovered/Resolved]
  - Drug interaction [Recovered/Resolved]

NARRATIVE: CASE EVENT DATE: 20160423
